FAERS Safety Report 5052511-6 (Version None)
Quarter: 2006Q3

REPORT INFORMATION
  Report Type: 
  Country: None (occurrence: None)
  Receive Date: 20060717
  Receipt Date: 20060704
  Transmission Date: 20061208
  Serious: Yes (Hospitalization, Other)
  Sender: FDA-Public Use
  Company Number: PHBS2006HK09987

PATIENT
  Age: 47 Year
  Sex: Male

DRUGS (5)
  1. CYCLOSPORINE [Suspect]
     Indication: HEART TRANSPLANT
     Dosage: 75 MG, BID
     Dates: start: 19990901
  2. PREDNISOLONE [Suspect]
     Indication: HEART TRANSPLANT
     Dosage: 5 MG, BID
     Dates: start: 19990901
  3. MYCOPHENOLATE MOFETIL [Concomitant]
     Indication: HEART TRANSPLANT
     Dosage: 1 G, BID
  4. SIROLIMUS [Suspect]
     Indication: HEART TRANSPLANT
     Dosage: 6 MG/D
  5. SIROLIMUS [Suspect]
     Dosage: 2 MG, QD

REACTIONS (16)
  - BLOOD GASES ABNORMAL [None]
  - CARDIOVASCULAR DISORDER [None]
  - COMPUTERISED TOMOGRAM THORAX ABNORMAL [None]
  - CORONARY ARTERY DISEASE [None]
  - COUGH [None]
  - DIABETES MELLITUS [None]
  - DYSPNOEA [None]
  - HYPERLIPIDAEMIA [None]
  - INTUBATION [None]
  - LIFE SUPPORT [None]
  - PERCUTANEOUS CORONARY INTERVENTION [None]
  - PNEUMONITIS [None]
  - PYREXIA [None]
  - RENAL FAILURE CHRONIC [None]
  - RESPIRATORY FAILURE [None]
  - VENTRICULAR DYSFUNCTION [None]
